FAERS Safety Report 9710765 (Version 1)
Quarter: 2013Q4

REPORT INFORMATION
  Report Type: Spontaneous
  Country: MX (occurrence: MX)
  Receive Date: 20131126
  Receipt Date: 20131126
  Transmission Date: 20140711
  Serious: Yes (Death)
  Sender: FDA-Public Use
  Company Number: MX-B.I. PHARMACEUTICALS,INC./RIDGEFIELD-2013-BI-38945MX

PATIENT
  Age: 62 Year
  Sex: Male

DRUGS (1)
  1. TRAJENTA [Suspect]
     Dates: start: 201310

REACTIONS (1)
  - Pancreatic carcinoma [Fatal]
